FAERS Safety Report 7523964-6 (Version None)
Quarter: 2011Q2

REPORT INFORMATION
  Report Type: 
  Country: None (occurrence: None)
  Receive Date: 20110603
  Receipt Date: 20110526
  Transmission Date: 20111010
  Serious: Yes (Death, Life-Threatening, Hospitalization, Other)
  Sender: FDA-Public Use
  Company Number: US-CELGENEUS-163-21880-10113189

PATIENT
  Sex: Male
  Weight: 73.8 kg

DRUGS (21)
  1. CARVEDILOL [Concomitant]
     Dosage: 12.5 MILLIGRAM
     Route: 048
  2. AMIODARONE HCL [Concomitant]
     Dosage: 150 MILLIGRAM
     Route: 051
  3. MAGNESIUM SULFATE [Concomitant]
     Dosage: 2 GRAM
     Route: 051
  4. FLAGYL [Concomitant]
     Dosage: 500 MILLIGRAM
     Route: 051
  5. METFORMIN HCL [Concomitant]
     Dosage: 500 MILLIGRAM
     Route: 048
  6. AMIODARONE HCL [Concomitant]
     Dosage: 0.5 MG/MIN ID D5W CONTINUOUS
     Route: 051
  7. CEFTAZIDIME [Concomitant]
     Dosage: 2000 MILLIGRAM
     Route: 051
  8. PENICILLIN G POTASSIUM [Concomitant]
     Dosage: 3 MILLION UNITS
     Route: 051
  9. CALCIUM CHLORIDE [Concomitant]
     Dosage: 2 GRAM
     Route: 051
  10. ACYCLOVIR [Concomitant]
     Dosage: 400 MILLIGRAM
     Route: 048
  11. VANCOMYCIN HCL [Concomitant]
     Dosage: 1 GRAM
     Route: 051
  12. MICAFUNGIN [Concomitant]
     Dosage: 100 MILLIGRAM
     Route: 051
  13. AMIODARONE HCL [Concomitant]
     Dosage: 1MG/MIN ID D5W X6 H
     Route: 051
  14. REVLIMID [Suspect]
     Dosage: 2.5 MILLIGRAM
     Route: 048
     Dates: start: 20100223, end: 20100921
  15. ALBUMIN (HUMAN) [Concomitant]
     Dosage: 50 GRAM
     Route: 051
  16. AMBIEN [Concomitant]
     Dosage: 10 MILLIGRAM
     Route: 048
  17. ASPIRIN [Concomitant]
     Dosage: 81 MILLIGRAM
     Route: 048
  18. CLINDAMYCIN PHOSPHATE [Concomitant]
     Dosage: 600 MILLIGRAM
     Route: 051
  19. DOXYCYLINE HYCLATE [Concomitant]
     Dosage: 100 MILLIGRAM
     Route: 051
  20. RITUXAN [Suspect]
     Dosage: 375 MILLIGRAM/SQ. METER
     Route: 065
     Dates: start: 20100406, end: 20100914
  21. FAMOTIDINE [Concomitant]
     Dosage: 20 MILLIGRAM
     Route: 051

REACTIONS (4)
  - VASCULITIS NECROTISING [None]
  - MULTI-ORGAN FAILURE [None]
  - SEPTIC SHOCK [None]
  - PNEUMONIA [None]
